FAERS Safety Report 20581671 (Version 2)
Quarter: 2022Q2

REPORT INFORMATION
  Report Type: Spontaneous
  Country: US (occurrence: US)
  Receive Date: 20220311
  Receipt Date: 20220415
  Transmission Date: 20220721
  Serious: No
  Sender: FDA-Public Use
  Company Number: US-Ipsen Biopharmaceuticals, Inc.-2022-05942

PATIENT
  Age: 32 Year
  Sex: Female

DRUGS (1)
  1. DYSPORT [Suspect]
     Active Substance: ABOBOTULINUMTOXINA
     Indication: Skin wrinkling
     Dosage: DOSE NOT REPORTED
     Route: 065
     Dates: start: 2020, end: 2020

REACTIONS (8)
  - Injection site discolouration [Recovered/Resolved]
  - Pallor [Recovering/Resolving]
  - Injection site haemorrhage [Recovering/Resolving]
  - Injection site bruising [Recovering/Resolving]
  - Injection site scab [Recovering/Resolving]
  - Injection site pain [Unknown]
  - Injection site discolouration [Unknown]
  - Product preparation error [Unknown]

NARRATIVE: CASE EVENT DATE: 20220212
